FAERS Safety Report 7628761-9 (Version None)
Quarter: 2011Q3

REPORT INFORMATION
  Report Type: 
  Country: None (occurrence: None)
  Receive Date: 20110722
  Receipt Date: 20110714
  Transmission Date: 20111222
  Serious: Yes (Life-Threatening, Hospitalization, Other)
  Sender: FDA-Public Use
  Company Number: US-BAYER-2011-028383

PATIENT
  Age: 34 Year
  Sex: Female

DRUGS (6)
  1. YAZ [Suspect]
     Indication: MENSTRUAL CYCLE MANAGEMENT
  2. YAZ [Suspect]
     Indication: PREMENSTRUAL SYNDROME
  3. YASMIN [Suspect]
     Indication: MENSTRUAL CYCLE MANAGEMENT
  4. YASMIN [Suspect]
     Indication: PREMENSTRUAL SYNDROME
  5. YAZ [Suspect]
     Indication: ORAL CONTRACEPTION
     Dosage: UNK
     Route: 048
     Dates: start: 19960101, end: 20030101
  6. YASMIN [Suspect]
     Indication: ORAL CONTRACEPTION
     Dosage: UNK
     Route: 048
     Dates: start: 19960101, end: 20030101

REACTIONS (15)
  - GALLBLADDER NON-FUNCTIONING [None]
  - CHEST PAIN [None]
  - ANHEDONIA [None]
  - CHOLELITHIASIS [None]
  - ABDOMINAL PAIN UPPER [None]
  - ANXIETY [None]
  - DIARRHOEA [None]
  - GENERAL PHYSICAL HEALTH DETERIORATION [None]
  - ORGAN FAILURE [None]
  - ABDOMINAL PAIN [None]
  - POST CHOLECYSTECTOMY SYNDROME [None]
  - DYSPEPSIA [None]
  - PAIN [None]
  - INSOMNIA [None]
  - EMOTIONAL DISTRESS [None]
